FAERS Safety Report 15264752 (Version 9)
Quarter: 2019Q1

REPORT INFORMATION
  Report Type: Spontaneous
  Country: US (occurrence: US)
  Receive Date: 20180810
  Receipt Date: 20190321
  Transmission Date: 20190417
  Serious: Yes (Other)
  Sender: FDA-Public Use
  Company Number: US-PFIZER INC-2018320205

PATIENT
  Age: 67 Year
  Sex: Female
  Weight: 87 kg

DRUGS (13)
  1. IBRANCE [Suspect]
     Active Substance: PALBOCICLIB
     Indication: BREAST CANCER METASTATIC
     Dosage: 125 MG, CYCLIC (ONCE A DAY FOR 21 DAYS THEN OFF 7 DAYS)
     Route: 048
     Dates: start: 201802, end: 2018
  2. AMLODIPINE [Concomitant]
     Active Substance: AMLODIPINE BESYLATE
     Indication: HYPERTENSION
     Dosage: 10 MG, 1X/DAY (IN THE MORNING)
     Route: 048
     Dates: start: 201802
  3. AMLODIPINE BESILATE [Concomitant]
     Active Substance: AMLODIPINE BESYLATE
     Indication: HYPERTENSION
     Dosage: 10 MG, 1X/DAY (MORNING)
     Route: 048
     Dates: start: 201710
  4. OMEPRAZOLE. [Concomitant]
     Active Substance: OMEPRAZOLE
     Dosage: 40 MG, ONCE DAILY
     Route: 048
  5. IBRANCE [Suspect]
     Active Substance: PALBOCICLIB
     Dosage: 125 MG, CYCLIC (ONCE A DAY FOR 21 DAYS THEN OFF 7 DAYS)
     Route: 048
     Dates: start: 20181125
  6. IBRANCE [Suspect]
     Active Substance: PALBOCICLIB
     Dosage: 125 MG, CYCLIC (DAILY 21 DAYS ON 7 DAYS OFF)
     Route: 048
     Dates: start: 201802
  7. LISINOPRIL. [Concomitant]
     Active Substance: LISINOPRIL
     Dosage: 10 MG, 1X/DAY (10 MG TABLET ONCE DAILY IN THE MORNING BY MOUTH)
     Route: 048
     Dates: start: 201802
  8. LETROZOLE. [Concomitant]
     Active Substance: LETROZOLE
     Indication: HORMONE THERAPY
  9. ZOMETA [Concomitant]
     Active Substance: ZOLEDRONIC ACID
     Indication: BONE LOSS
     Dosage: UNK, MONTHLY
  10. METOPROLOL SUCCINATE ER [Concomitant]
     Active Substance: METOPROLOL SUCCINATE
     Indication: HYPERTENSION
     Dosage: 100 MG, 1X/DAY (EVENING/BEDTIME)
     Route: 048
     Dates: start: 201710
  11. LISINOPRIL. [Concomitant]
     Active Substance: LISINOPRIL
     Indication: HYPERTENSION
     Dosage: 10 MG, 1X/DAY (MORNING)
     Route: 048
     Dates: start: 201710
  12. METOPROLOL. [Concomitant]
     Active Substance: METOPROLOL
     Indication: HYPERTENSION
     Dosage: 100 MG, 1X/DAY (IN NIGHT)
     Route: 048
     Dates: start: 201802
  13. LETROZOLE. [Concomitant]
     Active Substance: LETROZOLE
     Indication: BREAST CANCER FEMALE
     Dosage: 2.5 MG, 1X/DAY (MORNING)
     Route: 048
     Dates: start: 201711

REACTIONS (17)
  - Gastric haemorrhage [Not Recovered/Not Resolved]
  - Anaemia [Not Recovered/Not Resolved]
  - Weight increased [Unknown]
  - Depression [Unknown]
  - Vitamin D deficiency [Unknown]
  - Muscle fatigue [Unknown]
  - Nephrolithiasis [Unknown]
  - Muscle strain [Unknown]
  - Gastrointestinal arteriovenous malformation [Recovered/Resolved]
  - Ulcer [Unknown]
  - Congenital arterial malformation [Unknown]
  - Renal impairment [Unknown]
  - Abdominal pain upper [Unknown]
  - Vascular malformation [Unknown]
  - Urinary tract infection [Recovered/Resolved]
  - Back pain [Unknown]
  - Weight fluctuation [Unknown]

NARRATIVE: CASE EVENT DATE: 2018
